FAERS Safety Report 10080327 (Version 3)
Quarter: 2014Q2

REPORT INFORMATION
  Report Type: Report from Study
  Country: VE (occurrence: VE)
  Receive Date: 20140415
  Receipt Date: 20140521
  Transmission Date: 20141212
  Serious: Yes (Hospitalization)
  Sender: FDA-Public Use
  Company Number: PHHY2013VE024768

PATIENT
  Age: 73 Year
  Sex: Female

DRUGS (7)
  1. ACLASTA [Suspect]
     Indication: OSTEOPOROSIS
     Dosage: 5 MG, ANNUAL
     Route: 042
     Dates: start: 20121115
  2. ACLASTA [Suspect]
     Dosage: 5 MG, ANNUAL
     Route: 042
     Dates: start: 20131113
  3. CENTRUM [Concomitant]
     Dosage: 1 UKN, UNK
     Route: 048
     Dates: start: 20140225
  4. BEROCCA                                 /SCH/ [Concomitant]
     Dosage: 1 UKN, UNK
     Route: 048
     Dates: start: 20140225
  5. CALCIUM [Concomitant]
     Dosage: 1 UKN, UNK
     Route: 048
     Dates: start: 20140225
  6. VITAMIN B [Concomitant]
     Dosage: 1 UKN, UNK
     Dates: start: 20140225
  7. VITAMINS NOS [Concomitant]
     Dosage: UNK UKN, UNK

REACTIONS (10)
  - Spinal disorder [Unknown]
  - Spinal pain [Unknown]
  - General physical health deterioration [Unknown]
  - Gait disturbance [Unknown]
  - Sleep disorder [Unknown]
  - Device dislocation [Unknown]
  - Posture abnormal [Unknown]
  - Burning sensation [Recovering/Resolving]
  - Medical device pain [Unknown]
  - Pain in extremity [Recovering/Resolving]
